FAERS Safety Report 19652655 (Version 3)
Quarter: 2022Q1

REPORT INFORMATION
  Report Type: Spontaneous
  Country: US (occurrence: US)
  Receive Date: 20210803
  Receipt Date: 20220223
  Transmission Date: 20220423
  Serious: Yes (Other)
  Sender: FDA-Public Use
  Company Number: US-GILEAD-2021-0542463

PATIENT
  Age: 63 Year
  Sex: Female
  Weight: 81.633 kg

DRUGS (35)
  1. VIREAD [Suspect]
     Active Substance: TENOFOVIR DISOPROXIL FUMARATE
     Indication: HIV infection
     Dosage: UNK
     Route: 048
     Dates: start: 2013
  2. TRUVADA [Suspect]
     Active Substance: EMTRICITABINE\TENOFOVIR DISOPROXIL FUMARATE
     Indication: HIV infection
     Dosage: UNK
     Route: 048
     Dates: start: 2013
  3. EPIVIR [Concomitant]
     Active Substance: LAMIVUDINE
  4. EPZICOM [Concomitant]
     Active Substance: ABACAVIR SULFATE\LAMIVUDINE
  5. FUZEON [Concomitant]
     Active Substance: ENFUVIRTIDE
  6. ISENTRESS [Concomitant]
     Active Substance: RALTEGRAVIR POTASSIUM
  7. JULUCA [Concomitant]
     Active Substance: DOLUTEGRAVIR SODIUM\RILPIVIRINE HYDROCHLORIDE
  8. KALETRA [Concomitant]
     Active Substance: LOPINAVIR\RITONAVIR
  9. LEXIVA [Concomitant]
     Active Substance: FOSAMPRENAVIR CALCIUM
  10. NORVIR [Concomitant]
     Active Substance: RITONAVIR
  11. PREZISTA [Concomitant]
     Active Substance: DARUNAVIR ETHANOLATE
  12. TRIUMEQ [Concomitant]
     Active Substance: ABACAVIR SULFATE\DOLUTEGRAVIR SODIUM\LAMIVUDINE
  13. ACYCLOVIR [Concomitant]
     Active Substance: ACYCLOVIR
  14. CARVEDILOL [Concomitant]
     Active Substance: CARVEDILOL
  15. CELEXA [Concomitant]
     Active Substance: CITALOPRAM HYDROBROMIDE
  16. CLOPIDOGREL [Concomitant]
     Active Substance: CLOPIDOGREL BISULFATE
  17. FLUCONAZOLE [Concomitant]
     Active Substance: FLUCONAZOLE
  18. FUROSEMIDE [Concomitant]
     Active Substance: FUROSEMIDE
  19. GABAPENTIN [Concomitant]
     Active Substance: GABAPENTIN
  20. GLIMEPIRIDE [Concomitant]
     Active Substance: GLIMEPIRIDE
  21. HYDRALAZINE [Concomitant]
     Active Substance: HYDRALAZINE HYDROCHLORIDE
  22. JANUVIA [Concomitant]
     Active Substance: SITAGLIPTIN PHOSPHATE
  23. LIPITOR [Concomitant]
     Active Substance: ATORVASTATIN CALCIUM
  24. LOSARTAN [Concomitant]
     Active Substance: LOSARTAN
  25. OMEPRAZOLE [Concomitant]
     Active Substance: OMEPRAZOLE
  26. CRESTOR [Concomitant]
     Active Substance: ROSUVASTATIN CALCIUM
  27. TEMAZEPAM [Concomitant]
     Active Substance: TEMAZEPAM
  28. TRAMADOL [Concomitant]
     Active Substance: TRAMADOL
  29. VAGIFEM [Concomitant]
     Active Substance: ESTRADIOL
  30. VALACYCLOVIR HYDROCHLORIDE [Concomitant]
     Active Substance: VALACYCLOVIR HYDROCHLORIDE
  31. VITAMIN B COMPLEX [Concomitant]
     Active Substance: CYANOCOBALAMIN\DEXPANTHENOL\NIACINAMIDE\PYRIDOXINE HYDROCHLORIDE\RIBOFLAVIN 5^-PHOSPHATE SODIUM\THIA
  32. VITAMIN D2 [Concomitant]
     Active Substance: ERGOCALCIFEROL
  33. ENTRESTO [Concomitant]
     Active Substance: SACUBITRIL\VALSARTAN
  34. MYRBETRIQ [Concomitant]
     Active Substance: MIRABEGRON
  35. METOPROLOL [Concomitant]
     Active Substance: METOPROLOL

REACTIONS (14)
  - Osteoporosis [Recovered/Resolved]
  - Osteopenia [Recovered/Resolved]
  - Renal impairment [Unknown]
  - Bone density decreased [Unknown]
  - Pain [Not Recovered/Not Resolved]
  - Emotional distress [Not Recovered/Not Resolved]
  - Anxiety [Not Recovered/Not Resolved]
  - Anhedonia [Not Recovered/Not Resolved]
  - Depression [Unknown]
  - Back pain [Unknown]
  - Pollakiuria [Unknown]
  - Bone pain [Unknown]
  - Gait disturbance [Unknown]
  - Blood creatinine increased [Not Recovered/Not Resolved]

NARRATIVE: CASE EVENT DATE: 20170701
